FAERS Safety Report 17565015 (Version 1)
Quarter: 2020Q1

REPORT INFORMATION
  Report Type: Spontaneous
  Country: US (occurrence: US)
  Receive Date: 20200319
  Receipt Date: 20200319
  Transmission Date: 20200409
  Serious: Yes (Life-Threatening, Hospitalization, Disabling, Congenital Anomaly, Other)
  Sender: FDA-Public Use
  Company Number: None

PATIENT
  Age: 36 Year
  Sex: Female
  Weight: 52.65 kg

DRUGS (4)
  1. VITAMIN D3 [Concomitant]
     Active Substance: CHOLECALCIFEROL
  2. FOLIC ACID. [Suspect]
     Active Substance: FOLIC ACID
     Indication: PREGNANCY
     Route: 048
  3. FOLATE [Concomitant]
     Active Substance: FOLATE SODIUM
  4. K [Concomitant]

REACTIONS (11)
  - Hair disorder [None]
  - Exposure during pregnancy [None]
  - Oedema [None]
  - Immune system disorder [None]
  - Sleep disorder [None]
  - Pre-eclampsia [None]
  - Injury [None]
  - Anxiety [None]
  - Skin disorder [None]
  - Renal injury [None]
  - Liver injury [None]

NARRATIVE: CASE EVENT DATE: 20090529
